FAERS Safety Report 7142552-7 (Version None)
Quarter: 2010Q4

REPORT INFORMATION
  Report Type: 
  Country: None (occurrence: None)
  Receive Date: 20101112
  Receipt Date: 20100804
  Transmission Date: 20110411
  Serious: No
  Sender: FDA-Public Use
  Company Number: 1000015496

PATIENT
  Sex: Female

DRUGS (5)
  1. SAVELLA [Suspect]
     Dosage: SEE IMAGE: ORAL
     Route: 048
     Dates: start: 20100101, end: 20100101
  2. SAVELLA [Suspect]
     Dosage: SEE IMAGE: ORAL
     Route: 048
     Dates: start: 20100101, end: 20100101
  3. SAVELLA [Suspect]
     Dosage: SEE IMAGE: ORAL
     Route: 048
     Dates: start: 20100101, end: 20100101
  4. SAVELLA [Suspect]
     Dosage: SEE IMAGE: ORAL
     Route: 048
     Dates: start: 20100101
  5. DIOVAN [Concomitant]

REACTIONS (8)
  - AGITATION [None]
  - ASTHENIA [None]
  - BLOOD CHOLESTEROL INCREASED [None]
  - BLOOD PRESSURE INCREASED [None]
  - HEADACHE [None]
  - HYPERHIDROSIS [None]
  - IRRITABILITY [None]
  - PALPITATIONS [None]
